FAERS Safety Report 6081439-8 (Version None)
Quarter: 2009Q1

REPORT INFORMATION
  Report Type: 
  Country: None (occurrence: None)
  Receive Date: 20090213
  Receipt Date: 20090128
  Transmission Date: 20090719
  Serious: Yes (Death, Hospitalization)
  Sender: FDA-Public Use
  Company Number: A-NJ2008-21839

PATIENT
  Age: 47 Year
  Sex: Female

DRUGS (10)
  1. BOSENTAN VS UNBLINED (BOSENTAN I.MSPAH TABLET (62.5 MG) TABLET [Suspect]
     Indication: PULMONARY ARTERIAL HYPERTENSION
     Dosage: 125 MG, BID; 62.5 MG, BID, ORAL
     Route: 048
     Dates: start: 20070125, end: 20070221
  2. BOSENTAN VS UNBLINED (BOSENTAN I.MSPAH TABLET (62.5 MG) TABLET [Suspect]
     Indication: PULMONARY ARTERIAL HYPERTENSION
     Dosage: 125 MG, BID; 62.5 MG, BID, ORAL
     Route: 048
     Dates: start: 20070202, end: 20070523
  3. SILDENAFIL (SILDENAFIL) TABLET [Concomitant]
  4. DIGOXIN [Concomitant]
  5. ALDACTONE [Concomitant]
  6. NEXIUM (ESOMEPRAZOLE SODIUM) [Concomitant]
  7. LASIX [Concomitant]
  8. ULTRAM [Concomitant]
  9. PREDNISONE TAB [Concomitant]
  10. KETOPROFEN [Concomitant]

REACTIONS (33)
  - ARTHRALGIA [None]
  - AUTOIMMUNE HEPATITIS [None]
  - CARDIOVASCULAR DISORDER [None]
  - CHEST DISCOMFORT [None]
  - CHEST PAIN [None]
  - CHRONIC HEPATIC FAILURE [None]
  - CONDITION AGGRAVATED [None]
  - DIZZINESS [None]
  - DYSPHAGIA [None]
  - EAR PAIN [None]
  - ENCEPHALOPATHY [None]
  - GENERAL PHYSICAL HEALTH DETERIORATION [None]
  - HEADACHE [None]
  - HEPATIC CIRRHOSIS [None]
  - HEPATIC FAILURE [None]
  - HEPATIC FIBROSIS [None]
  - HEPATIC NECROSIS [None]
  - HEPATITIS TOXIC [None]
  - HEPATORENAL FAILURE [None]
  - HEPATORENAL SYNDROME [None]
  - HYPONATRAEMIA [None]
  - INTERNATIONAL NORMALISED RATIO INCREASED [None]
  - LIVER INJURY [None]
  - MUSCULAR WEAKNESS [None]
  - MYOPATHY [None]
  - OXYGEN SATURATION DECREASED [None]
  - PALPITATIONS [None]
  - PULMONARY ARTERIAL HYPERTENSION [None]
  - SEPSIS [None]
  - SHOCK [None]
  - SYSTEMIC LUPUS ERYTHEMATOSUS [None]
  - TOOTH DISORDER [None]
  - URINARY TRACT INFECTION [None]
